FAERS Safety Report 9308206 (Version 1)
Quarter: 2013Q2

REPORT INFORMATION
  Report Type: Spontaneous
  Country: CH (occurrence: CH)
  Receive Date: 20130523
  Receipt Date: 20130523
  Transmission Date: 20140414
  Serious: Yes (Other)
  Sender: FDA-Public Use
  Company Number: CH-CTI_01577_2013

PATIENT
  Age: 1 Day
  Sex: Male

DRUGS (3)
  1. CUROSURF [Suspect]
     Indication: NEONATAL RESPIRATORY DISTRESS SYNDROME
     Dosage: [DAILY; TOTAL OF THREE VIALS, TWO FROM BATCH NUMBER 10779910 AND ONE FROM BATCH NUMBER 1078674]
     Route: 039
     Dates: start: 20130112, end: 20130112
  2. MORPHINE [Suspect]
     Indication: SEDATIVE THERAPY
     Dosage: TWICE A DAY
     Route: 040
     Dates: start: 20130112
  3. MORPHINE [Suspect]
     Dosage: DAILY
     Route: 040
     Dates: start: 20130111, end: 20130111

REACTIONS (2)
  - Pulmonary hypertension [Unknown]
  - Oxygen saturation decreased [Recovered/Resolved]
